FAERS Safety Report 8859190 (Version 3)
Quarter: 2012Q4

REPORT INFORMATION
  Report Type: 
  Country: US (occurrence: US)
  Receive Date: 20121024
  Receipt Date: 20121212
  Transmission Date: 20130627
  Serious: No
  Sender: FDA-Public Use
  Company Number: US-PFIZER INC-2012254626

PATIENT
  Sex: Female

DRUGS (2)
  1. SUTENT [Suspect]
     Indication: CANCER
     Dosage: UNK
  2. SUTENT [Suspect]
     Dosage: 3 x 12.5 mg daily

REACTIONS (5)
  - Circumstance or information capable of leading to medication error [Unknown]
  - Diarrhoea [Unknown]
  - Nausea [Unknown]
  - Dysgeusia [Unknown]
  - Alopecia [Unknown]
